FAERS Safety Report 11335686 (Version 1)
Quarter: 2015Q3

REPORT INFORMATION
  Report Type: Spontaneous
  Country: US (occurrence: None)
  Receive Date: 20150731
  Receipt Date: 20150731
  Transmission Date: 20151125
  Serious: No
  Sender: FDA-Public Use
  Company Number: None

PATIENT
  Age: 42 Year
  Sex: Male

DRUGS (1)
  1. STELARA [Suspect]
     Active Substance: USTEKINUMAB
     Indication: PSORIASIS
     Dosage: 45 MG Q12WKS  SQ
     Route: 058
     Dates: start: 20111014, end: 20150730

REACTIONS (2)
  - Oropharyngeal pain [None]
  - Productive cough [None]

NARRATIVE: CASE EVENT DATE: 20150730
